FAERS Safety Report 16022340 (Version 2)
Quarter: 2019Q2

REPORT INFORMATION
  Report Type: Report from Study
  Country: CA (occurrence: CA)
  Receive Date: 20190301
  Receipt Date: 20190419
  Transmission Date: 20190711
  Serious: Yes (Death, Hospitalization)
  Sender: FDA-Public Use
  Company Number: CA-HLSUS-2019-CA-000201

PATIENT
  Age: 60 Year
  Sex: Male

DRUGS (1)
  1. CLOZARIL [Suspect]
     Active Substance: CLOZAPINE
     Route: 048
     Dates: start: 19990323

REACTIONS (1)
  - Pneumonia viral [Fatal]

NARRATIVE: CASE EVENT DATE: 20181212
